FAERS Safety Report 8586557-8 (Version None)
Quarter: 2012Q3

REPORT INFORMATION
  Report Type: 
  Country: None (occurrence: None)
  Receive Date: 20120810
  Receipt Date: 20120802
  Transmission Date: 20120928
  Serious: Yes (Hospitalization)
  Sender: FDA-Public Use
  Company Number: US-CELGENEUS-163-21880-12063687

PATIENT
  Age: 72 Year
  Sex: Female
  Weight: 67.192 kg

DRUGS (15)
  1. REVLIMID [Suspect]
     Dosage: 5 MILLIGRAM
     Route: 048
     Dates: start: 20110601
  2. ASPIRIN [Concomitant]
     Indication: ROUTINE HEALTH MAINTENANCE
     Dosage: 81 MILLIGRAM
     Route: 065
     Dates: start: 20110523
  3. ZOFRAN [Concomitant]
     Indication: NAUSEA
     Dosage: 24 MILLIGRAM
     Route: 065
     Dates: start: 20120531
  4. REVLIMID [Suspect]
     Dosage: 10 MILLIGRAM
     Route: 048
     Dates: start: 20110310, end: 20110531
  5. LASIX [Concomitant]
     Route: 065
     Dates: start: 20110425
  6. LOPRESSOR [Concomitant]
     Indication: HYPERTENSION
     Dosage: 100 MILLIGRAM
     Route: 065
     Dates: start: 20100519
  7. REVLIMID [Suspect]
     Indication: MULTIPLE MYELOMA
     Dosage: 10 MILLIGRAM
     Route: 048
     Dates: start: 20100127, end: 20100714
  8. OMEPRAZOLE [Concomitant]
     Dosage: 80 MILLIGRAM
     Route: 065
     Dates: start: 20120328
  9. SIMVASTATIN [Concomitant]
     Dosage: 40 MILLIGRAM
     Route: 065
     Dates: start: 20120718
  10. VITAMIN D [Concomitant]
     Indication: ROUTINE HEALTH MAINTENANCE
     Dosage: 400 IU (INTERNATIONAL UNIT)
     Route: 065
     Dates: start: 20091117
  11. GABAPENTIN [Concomitant]
     Dosage: 900 MILLIGRAM
     Route: 065
     Dates: start: 20120229
  12. IMURAN [Concomitant]
     Indication: SCLERODERMA
     Dosage: 50 MILLIGRAM
     Route: 065
     Dates: start: 20110425
  13. CALCIUM [Concomitant]
     Indication: ROUTINE HEALTH MAINTENANCE
     Dosage: 600 MILLIGRAM
     Route: 065
     Dates: start: 20091117
  14. OXYCONTIN [Concomitant]
     Indication: PAIN
     Dosage: 60 MILLIGRAM
     Route: 065
     Dates: start: 20120718
  15. OXYCODONE HCL [Concomitant]
     Indication: PAIN
     Route: 065
     Dates: start: 20120201

REACTIONS (1)
  - COLON CANCER STAGE II [None]
